FAERS Safety Report 7978237-4 (Version None)
Quarter: 2011Q4

REPORT INFORMATION
  Report Type: 
  Country: None (occurrence: None)
  Receive Date: 20111214
  Receipt Date: 20111201
  Transmission Date: 20120403
  Serious: Yes (Life-Threatening)
  Sender: FDA-Public Use
  Company Number: US-PFIZER INC-2009224317

PATIENT
  Sex: Female
  Weight: 84.354 kg

DRUGS (15)
  1. DILAUDID [Concomitant]
     Dosage: 2 MG, Q4H, AS NEEDED
     Route: 048
     Dates: start: 20090403, end: 20090522
  2. CRESTOR [Concomitant]
     Dosage: 10 MG, QHS
     Route: 048
     Dates: start: 20080815
  3. VICODIN [Concomitant]
     Dosage: 5 MG/500MG, Q46H
     Route: 048
     Dates: start: 20090522
  4. ATENOLOL [Concomitant]
     Dosage: 100 MG, 1X/DAY
     Route: 048
     Dates: start: 20081219
  5. FOSAMAX [Concomitant]
     Dosage: 70 MG, WEEKLY
     Route: 048
     Dates: start: 20080701
  6. CALCITRIOL [Concomitant]
     Dosage: 0.25 UG, 1X/DAY
     Route: 048
     Dates: start: 20080711
  7. CP-751,871 [Suspect]
     Indication: BREAST CANCER
     Dosage: 20 MG/KG (1690 MG), EVERY 3 WEEKS
     Route: 042
     Dates: start: 20090410, end: 20090522
  8. LISINOPRIL [Concomitant]
     Dosage: 5 MG, 1X/DAY
     Route: 048
     Dates: start: 20090323
  9. COLACE [Concomitant]
     Dosage: 100 MG, 1X/DAY
     Route: 048
     Dates: start: 20090403
  10. EXEMESTANE [Suspect]
     Indication: BREAST CANCER
     Dosage: 25 MG, 1X/DAY
     Route: 048
     Dates: start: 20080725, end: 20090611
  11. EFFEXOR XR [Concomitant]
     Dosage: 150 MG, 1X/DAY
     Route: 048
     Dates: start: 20080711
  12. PEPCID [Concomitant]
     Dosage: 20 MG, 2X/DAY
     Route: 048
     Dates: start: 20090403
  13. TRILEPTAL [Concomitant]
     Dosage: 300 MG, 2X/DAY
     Route: 048
     Dates: start: 20080711
  14. ADDERALL 5 [Concomitant]
     Dosage: 15 MG, 1X/DAY
     Route: 048
     Dates: start: 20080926
  15. ATIVAN [Concomitant]
     Dosage: 0.5 MG, Q4H, AS NEEDED
     Route: 048
     Dates: start: 20090220

REACTIONS (1)
  - PULMONARY EMBOLISM [None]
